FAERS Safety Report 18444977 (Version 1)
Quarter: 2020Q4

REPORT INFORMATION
  Report Type: Spontaneous
  Country: JP (occurrence: JP)
  Receive Date: 20201030
  Receipt Date: 20201030
  Transmission Date: 20210114
  Serious: Yes (Hospitalization)
  Sender: FDA-Public Use
  Company Number: JP-EISAI MEDICAL RESEARCH-EC-2020-082672

PATIENT
  Sex: Female

DRUGS (1)
  1. ERIBULIN [Suspect]
     Active Substance: ERIBULIN
     Indication: HER2 POSITIVE BREAST CANCER
     Dosage: DOSE UNKNOWN
     Route: 042

REACTIONS (4)
  - Hepatic atrophy [Unknown]
  - Ascites [Unknown]
  - Hepatic function abnormal [Unknown]
  - Pleural effusion [Unknown]
